FAERS Safety Report 23832376 (Version 2)
Quarter: 2024Q3

REPORT INFORMATION
  Report Type: Spontaneous
  Country: US (occurrence: US)
  Receive Date: 20240508
  Receipt Date: 20240813
  Transmission Date: 20241017
  Serious: No
  Sender: SANOFI AVENTIS
  Company Number: US-SA-SAC20240429000407

PATIENT
  Age: 61 Year
  Sex: Male

DRUGS (1)
  1. DUPIXENT [Suspect]
     Active Substance: DUPILUMAB
     Dosage: 300 MG, QOW
     Route: 058

REACTIONS (7)
  - Asthma [Unknown]
  - Increased upper airway secretion [Unknown]
  - Total lung capacity decreased [Unknown]
  - Sputum discoloured [Unknown]
  - Productive cough [Unknown]
  - Myalgia [Unknown]
  - Arthralgia [Unknown]
